FAERS Safety Report 9045558 (Version 4)
Quarter: 2013Q2

REPORT INFORMATION
  Report Type: Spontaneous
  Country: US (occurrence: US)
  Receive Date: 20130131
  Receipt Date: 20130412
  Transmission Date: 20140414
  Serious: Yes (Death, Hospitalization, Other)
  Sender: FDA-Public Use
  Company Number: US-PFIZER INC-2013039359

PATIENT
  Age: 87 Year
  Sex: Female
  Weight: 60.8 kg

DRUGS (9)
  1. SUTENT [Suspect]
     Indication: RENAL CELL CARCINOMA
     Dosage: 50 MG, DAILY (4 WK ON + OFF)
     Route: 048
     Dates: start: 20130107, end: 20130207
  2. SUTENT [Suspect]
     Dosage: 50 MG, EVERY OTHER DAY
     Dates: end: 20130214
  3. ALENDRONATE SODIUM [Concomitant]
     Indication: BONE DISORDER
     Dosage: 70 MG, WEEKLY
  4. LISINOPRIL W/HYDROCHLOROTHIAZIDE [Concomitant]
     Indication: CARDIAC DISORDER
     Dosage: 20/25 MG, DAILY
  5. AMLODIPINE BESILATE [Concomitant]
     Indication: CARDIAC DISORDER
     Dosage: 5 MG, DAILY
  6. HYDRALAZINE [Concomitant]
     Indication: HYPERTENSION
     Dosage: 10 MG, DAILY
  7. WARFARIN [Concomitant]
     Indication: BLOOD DISORDER
     Dosage: 5 MG ONCE/WEEK FOLLOWED BY 2.5 MG NEXT 6 DAYS IN A WEEK
  8. CALCIUM [Concomitant]
     Indication: BONE DISORDER
     Dosage: UNK
  9. VITAMIN D [Concomitant]
     Indication: BONE DISORDER
     Dosage: UNK

REACTIONS (9)
  - Disease progression [Fatal]
  - Renal cell carcinoma [Fatal]
  - International normalised ratio increased [Unknown]
  - White blood cell count decreased [Unknown]
  - Blood sodium decreased [Unknown]
  - Blood magnesium decreased [Unknown]
  - Pancytopenia [Recovering/Resolving]
  - Yellow skin [Not Recovered/Not Resolved]
  - Coagulopathy [Recovered/Resolved with Sequelae]
